FAERS Safety Report 21140610 (Version 4)
Quarter: 2023Q1

REPORT INFORMATION
  Report Type: Spontaneous
  Country: JP (occurrence: JP)
  Receive Date: 20220728
  Receipt Date: 20230323
  Transmission Date: 20230418
  Serious: Yes (Hospitalization, Other)
  Sender: FDA-Public Use
  Company Number: JP-BRISTOL-MYERS SQUIBB COMPANY-2022-039710

PATIENT
  Age: 75 Year
  Sex: Female
  Weight: 60 kg

DRUGS (5)
  1. YERVOY [Suspect]
     Active Substance: IPILIMUMAB
     Indication: Non-small cell lung cancer
     Route: 041
     Dates: start: 20211020, end: 20211020
  2. YERVOY [Suspect]
     Active Substance: IPILIMUMAB
     Route: 041
     Dates: start: 20211203, end: 20211203
  3. OPDIVO [Suspect]
     Active Substance: NIVOLUMAB
     Indication: Non-small cell lung cancer
     Route: 041
     Dates: start: 20211020, end: 20211020
  4. OPDIVO [Suspect]
     Active Substance: NIVOLUMAB
     Dates: start: 20211112, end: 20211112
  5. OPDIVO [Suspect]
     Active Substance: NIVOLUMAB
     Dates: start: 20211203, end: 20211203

REACTIONS (12)
  - Immune-mediated dermatitis [Recovering/Resolving]
  - Liver disorder [Recovering/Resolving]
  - Stomatitis [Unknown]
  - Hyponatraemia [Unknown]
  - Tumour pseudoprogression [Unknown]
  - Immune-mediated adrenal insufficiency [Recovering/Resolving]
  - Urticaria [Recovered/Resolved]
  - Erythema [Unknown]
  - Lip erosion [Recovered/Resolved]
  - Taste disorder [Recovering/Resolving]
  - Pain [Recovering/Resolving]
  - Eosinophil count increased [Unknown]

NARRATIVE: CASE EVENT DATE: 20211021
